FAERS Safety Report 11509097 (Version 1)
Quarter: 2015Q3

REPORT INFORMATION
  Report Type: Spontaneous
  Country: US (occurrence: US)
  Receive Date: 20150903
  Receipt Date: 20150903
  Transmission Date: 20151125
  Serious: No
  Sender: FDA-Public Use
  Company Number: US-ELI_LILLY_AND_COMPANY-US201003000685

PATIENT

DRUGS (4)
  1. LANTUS [Concomitant]
     Active Substance: INSULIN GLARGINE
     Dosage: 90 U, EACH EVENING
     Dates: start: 2002
  2. ORAL ANTIDIABETICS [Concomitant]
     Active Substance: UNSPECIFIED INGREDIENT
     Dosage: UNK, 2/D
     Dates: start: 1998
  3. HUMALOG [Suspect]
     Active Substance: INSULIN LISPRO
     Indication: DIABETES MELLITUS
     Dosage: 14 U, 2/D
     Dates: start: 2000
  4. HUMALOG [Suspect]
     Active Substance: INSULIN LISPRO
     Dosage: 16 U, OTHER
     Dates: start: 2000

REACTIONS (2)
  - Drug prescribing error [Recovered/Resolved]
  - Drug dispensing error [Recovered/Resolved]
